FAERS Safety Report 7584548-7 (Version None)
Quarter: 2011Q2

REPORT INFORMATION
  Report Type: 
  Country: None (occurrence: None)
  Receive Date: 20110630
  Receipt Date: 20090504
  Transmission Date: 20111010
  Serious: Yes (Other)
  Sender: FDA-Public Use
  Company Number: US-PFIZER INC-2009208581

PATIENT
  Sex: Male
  Weight: 83.914 kg

DRUGS (1)
  1. GEODON [Suspect]
     Indication: ANXIETY
     Dosage: 20 MG, UNK
     Dates: start: 20090101

REACTIONS (15)
  - ACTIVITIES OF DAILY LIVING IMPAIRED [None]
  - VISUAL IMPAIRMENT [None]
  - SOMNOLENCE [None]
  - POLYDIPSIA [None]
  - COUGH [None]
  - DISTURBANCE IN ATTENTION [None]
  - FATIGUE [None]
  - HEADACHE [None]
  - HYPOAESTHESIA [None]
  - TINNITUS [None]
  - HYPERHIDROSIS [None]
  - DRY MOUTH [None]
  - SEDATION [None]
  - NASOPHARYNGITIS [None]
  - BODY TEMPERATURE INCREASED [None]
